FAERS Safety Report 19349504 (Version 2)
Quarter: 2021Q2

REPORT INFORMATION
  Report Type: Report from Study
  Country: FR (occurrence: FR)
  Receive Date: 20210531
  Receipt Date: 20210609
  Transmission Date: 20210717
  Serious: Yes (Hospitalization, Other)
  Sender: FDA-Public Use
  Company Number: FR-AUROBINDO-AUR-APL-2021-021620

PATIENT
  Age: 45 Year
  Sex: Male

DRUGS (4)
  1. FLUCONAZOLE. [Interacting]
     Active Substance: FLUCONAZOLE
     Dosage: 400 MILLIGRAM, ONCE A DAY
     Route: 065
     Dates: start: 2015
  2. AZATHIOPRINE. [Concomitant]
     Active Substance: AZATHIOPRINE
     Indication: IMMUNOSUPPRESSANT DRUG THERAPY
     Dosage: UNK
     Route: 065
     Dates: start: 201509
  3. TACROLIMUS. [Interacting]
     Active Substance: TACROLIMUS
     Indication: IMMUNOSUPPRESSANT DRUG THERAPY
     Dosage: UNK
     Route: 065
     Dates: start: 201501, end: 2015
  4. FLUCONAZOLE. [Suspect]
     Active Substance: FLUCONAZOLE
     Indication: MENINGITIS CRYPTOCOCCAL
     Dosage: 800 MILLIGRAM, ONCE A DAY
     Route: 065
     Dates: start: 2015

REACTIONS (4)
  - Acute kidney injury [Recovered/Resolved]
  - Overdose [Recovered/Resolved]
  - Drug level increased [Recovered/Resolved]
  - Drug interaction [Recovered/Resolved]

NARRATIVE: CASE EVENT DATE: 2015
